FAERS Safety Report 10602473 (Version 1)
Quarter: 2014Q4

REPORT INFORMATION
  Report Type: Report from Study
  Country: PL (occurrence: PL)
  Receive Date: 20141124
  Receipt Date: 20141124
  Transmission Date: 20150529
  Serious: Yes (Hospitalization)
  Sender: FDA-Public Use
  Company Number: PL-AMGEN-POLCT2014089521

PATIENT
  Age: 81 Year
  Sex: Female

DRUGS (2)
  1. INSULIN                            /00646001/ [Concomitant]
     Active Substance: INSULIN NOS
  2. DENOSUMAB [Suspect]
     Active Substance: DENOSUMAB
     Indication: OSTEOPOROSIS POSTMENOPAUSAL
     Dosage: 1ML/60MG, Q6MO
     Route: 058
     Dates: start: 20050523

REACTIONS (2)
  - Atrioventricular block second degree [Unknown]
  - Atrial fibrillation [Recovered/Resolved]

NARRATIVE: CASE EVENT DATE: 20140914
